FAERS Safety Report 19722661 (Version 1)
Quarter: 2021Q3

REPORT INFORMATION
  Report Type: Spontaneous
  Country: US (occurrence: US)
  Receive Date: 20210819
  Receipt Date: 20210819
  Transmission Date: 20211014
  Serious: No
  Sender: FDA-Public Use
  Company Number: US-KYOWAKIRIN-2021BKK014000

PATIENT

DRUGS (1)
  1. NOURIANZ [Suspect]
     Active Substance: ISTRADEFYLLINE
     Indication: PARKINSON^S DISEASE
     Dosage: 1 TAB (20 MG), QD
     Route: 048
     Dates: start: 20200421, end: 20210805

REACTIONS (1)
  - Libido decreased [Recovered/Resolved]

NARRATIVE: CASE EVENT DATE: 202106
